FAERS Safety Report 20069163 (Version 2)
Quarter: 2021Q4

REPORT INFORMATION
  Report Type: Spontaneous
  Country: US (occurrence: US)
  Receive Date: 20211115
  Receipt Date: 20211210
  Transmission Date: 20220303
  Serious: Yes (Hospitalization)
  Sender: FDA-Public Use
  Company Number: US-CELGENE-USA-20211102891

PATIENT
  Age: 74 Year
  Sex: Male

DRUGS (2)
  1. REVLIMID [Suspect]
     Active Substance: LENALIDOMIDE
     Indication: Plasma cell myeloma
     Dosage: 25 MILLIGRAM
     Route: 048
     Dates: start: 202110
  2. REVLIMID [Suspect]
     Active Substance: LENALIDOMIDE
     Indication: Myelodysplastic syndrome

REACTIONS (8)
  - Syncope [Unknown]
  - Vomiting [Unknown]
  - Dizziness [Unknown]
  - Fall [Unknown]
  - Atrial fibrillation [Unknown]
  - Full blood count decreased [Unknown]
  - Transient ischaemic attack [Unknown]
  - Hypotension [Unknown]

NARRATIVE: CASE EVENT DATE: 20211101
